FAERS Safety Report 9495059 (Version 2)
Quarter: 2014Q1

REPORT INFORMATION
  Report Type: Spontaneous
  Country: US (occurrence: None)
  Receive Date: 20130828
  Receipt Date: 20140311
  Transmission Date: 20141002
  Serious: Yes (Other)
  Sender: FDA-Public Use
  Company Number: ADR-2013-01484

PATIENT
  Age: 66 Year
  Sex: Female

DRUGS (4)
  1. BACLOFEN [Suspect]
     Indication: CANCER PAIN
     Dosage: 80.11 MCG/DAY
  2. DILAUDID [Suspect]
     Dosage: 1.6022 MG/DAY
  3. CLONIDINE [Suspect]
  4. BUPIVACAINE [Suspect]

REACTIONS (5)
  - Haematoma [None]
  - Incision site haemorrhage [None]
  - Incision site oedema [None]
  - Implant site haematoma [None]
  - Complication of device insertion [None]
